FAERS Safety Report 6253605-X (Version None)
Quarter: 2009Q3

REPORT INFORMATION
  Report Type: 
  Country: None (occurrence: None)
  Receive Date: 20090701
  Receipt Date: 20090622
  Transmission Date: 20100115
  Serious: Yes (Other)
  Sender: FDA-Public Use
  Company Number: US-JNJCH-2009016863

PATIENT
  Age: 54 Year
  Sex: Male
  Weight: 79.4 kg

DRUGS (2)
  1. BENADRYL [Suspect]
     Indication: HYPERSENSITIVITY
     Dosage: TEXT:ONE-THIRD ULTRATAB ONCE
     Route: 048
     Dates: start: 20090617, end: 20090617
  2. VALIUM [Concomitant]
     Indication: ANXIETY
     Dosage: TEXT:1 MG ONCE NIGHTLY
     Route: 065

REACTIONS (5)
  - BURNING SENSATION [None]
  - EYE SWELLING [None]
  - HEADACHE [None]
  - OCULAR HYPERAEMIA [None]
  - WRONG TECHNIQUE IN DRUG USAGE PROCESS [None]
